FAERS Safety Report 5207885-X (Version None)
Quarter: 2007Q1

REPORT INFORMATION
  Report Type: 
  Country: None (occurrence: None)
  Receive Date: 20070112
  Receipt Date: 20070108
  Transmission Date: 20070707
  Serious: Yes (Death, Hospitalization)
  Sender: FDA-Public Use
  Company Number: FR-PFIZER INC-2007002923

PATIENT
  Age: 29 Year
  Sex: Male
  Weight: 64 kg

DRUGS (7)
  1. SOLU-MEDROL [Suspect]
     Indication: NAUSEA
     Dates: start: 20060724, end: 20060920
  2. SOLU-MEDROL [Suspect]
     Indication: VOMITING
  3. ETOPOSIDE [Suspect]
     Indication: TESTIS CANCER
     Route: 042
     Dates: start: 20060724, end: 20060908
  4. CISPLATIN [Suspect]
     Indication: TESTIS CANCER
     Route: 042
     Dates: start: 20060724, end: 20060908
  5. ONDANSETRON [Suspect]
     Indication: NAUSEA
     Dates: start: 20060724, end: 20060920
  6. ONDANSETRON [Suspect]
     Indication: VOMITING
  7. BLEOMYCIN [Suspect]
     Indication: TESTIS CANCER
     Route: 042
     Dates: start: 20060724, end: 20060920

REACTIONS (2)
  - INTERSTITIAL LUNG DISEASE [None]
  - PULMONARY FIBROSIS [None]
